FAERS Safety Report 23377533 (Version 2)
Quarter: 2024Q2

REPORT INFORMATION
  Report Type: Spontaneous
  Country: US (occurrence: US)
  Receive Date: 20240108
  Receipt Date: 20240404
  Transmission Date: 20240716
  Serious: Yes (Other)
  Sender: FDA-Public Use
  Company Number: US-BRISTOL-MYERS SQUIBB COMPANY-2024-002902

PATIENT
  Age: 75 Year
  Sex: Female

DRUGS (1)
  1. LENALIDOMIDE [Suspect]
     Active Substance: LENALIDOMIDE
     Indication: Plasma cell myeloma in remission
     Dosage: TAKE 1 CAPSULE BY MOUTH DAILY ON MONDAY -FRIDAY, SATURDAY AND SUNDAY OFF, FOR 21 DAYS ON AND 7 DAYS
     Route: 048

REACTIONS (4)
  - Dementia [Unknown]
  - Product dose omission issue [Recovered/Resolved]
  - Product availability issue [Unknown]
  - Therapy interrupted [Unknown]
